FAERS Safety Report 7012674-X (Version None)
Quarter: 2010Q3

REPORT INFORMATION
  Report Type: 
  Country: None (occurrence: None)
  Receive Date: 20100913
  Receipt Date: 20100111
  Transmission Date: 20110219
  Serious: Yes (Hospitalization, Other)
  Sender: FDA-Public Use
  Company Number: 2010SP002567

PATIENT
  Age: 29 Year
  Sex: Female

DRUGS (3)
  1. IMPLANON [Suspect]
     Indication: PRODUCT USED FOR UNKNOWN INDICATION
     Dosage: 1 DF;
     Dates: start: 20100106
  2. SYNTHROID (CON.) [Concomitant]
  3. STEROIDS (CON.) [Concomitant]

REACTIONS (1)
  - VENA CAVA EMBOLISM [None]
